FAERS Safety Report 8333481-1 (Version None)
Quarter: 2012Q2

REPORT INFORMATION
  Report Type: 
  Country: None (occurrence: None)
  Receive Date: 20120503
  Receipt Date: 20120426
  Transmission Date: 20120825
  Serious: Yes (Other)
  Sender: FDA-Public Use
  Company Number: AU-SANOFI-AVENTIS-2012SA029432

PATIENT
  Age: 72 Year
  Sex: Female

DRUGS (9)
  1. ARAVA [Suspect]
     Route: 048
     Dates: start: 20081001
  2. CEBION-CALCIUM MED D3-VITAMIN [Concomitant]
  3. OXYCONTIN [Concomitant]
  4. LEVOTHYROXINE SODIUM [Concomitant]
  5. METFORMIN HCL [Concomitant]
  6. PREDNISONE [Concomitant]
  7. VITAMIN B-12 [Concomitant]
  8. ROSUVASTATIN [Concomitant]
  9. KARVEA [Concomitant]

REACTIONS (2)
  - LIGAMENT SPRAIN [None]
  - ANKLE FRACTURE [None]
